FAERS Safety Report 19305247 (Version 3)
Quarter: 2021Q4

REPORT INFORMATION
  Report Type: Spontaneous
  Country: JP (occurrence: JP)
  Receive Date: 20210525
  Receipt Date: 20211027
  Transmission Date: 20220303
  Serious: Yes (Death, Hospitalization, Other)
  Sender: FDA-Public Use
  Company Number: JP-FERRINGPH-2021FE03200

PATIENT
  Age: 68 Year
  Sex: Male
  Weight: 64 kg

DRUGS (9)
  1. DEGARELIX [Suspect]
     Active Substance: DEGARELIX
     Indication: Prostate cancer
     Dosage: 80 MG, MONTHLY
     Route: 058
     Dates: start: 20200720, end: 20201003
  2. DEGARELIX [Suspect]
     Active Substance: DEGARELIX
     Dosage: 240 MG
     Route: 058
     Dates: start: 20200622, end: 20200622
  3. XTANDI [Suspect]
     Active Substance: ENZALUTAMIDE
     Indication: Prostate cancer
     Dosage: 160 MG, 1 TIME DAILY
     Route: 048
     Dates: start: 20200622, end: 20201003
  4. LIPITOR [Concomitant]
     Active Substance: ATORVASTATIN CALCIUM
     Route: 065
  5. FEBUXOSTAT [Concomitant]
     Active Substance: FEBUXOSTAT
     Route: 065
  6. TRAPIDIL [Concomitant]
     Active Substance: TRAPIDIL
     Route: 065
  7. CETRAXATE HYDROCHLORIDE [Concomitant]
     Active Substance: CETRAXATE HYDROCHLORIDE
     Route: 065
  8. LYRICA [Concomitant]
     Active Substance: PREGABALIN
     Dosage: UNK
     Route: 065
     Dates: start: 20200914, end: 20201003
  9. MICATRIO [Concomitant]
     Indication: Hypertension
     Dosage: 1 TABLET, DAILY
     Route: 048

REACTIONS (4)
  - Drowning [Fatal]
  - Loss of consciousness [Unknown]
  - Myocardial infarction [Unknown]
  - Arrhythmia [Unknown]

NARRATIVE: CASE EVENT DATE: 20201003
